FAERS Safety Report 8229398-3 (Version None)
Quarter: 2012Q1

REPORT INFORMATION
  Report Type: 
  Country: None (occurrence: None)
  Receive Date: 20120322
  Receipt Date: 20120315
  Transmission Date: 20120608
  Serious: Yes (Other)
  Sender: FDA-Public Use
  Company Number: US-JNJFOC-20120308393

PATIENT
  Sex: Male
  Weight: 105.24 kg

DRUGS (2)
  1. SIMPONI [Suspect]
     Indication: PSORIASIS
     Route: 058
     Dates: start: 20110401, end: 20120314
  2. TESTOSTERONE [Concomitant]

REACTIONS (1)
  - POLYCYTHAEMIA [None]
